FAERS Safety Report 16208999 (Version 2)
Quarter: 2019Q2

REPORT INFORMATION
  Report Type: Spontaneous
  Country: JP (occurrence: JP)
  Receive Date: 20190417
  Receipt Date: 20190606
  Transmission Date: 20190711
  Serious: Yes (Other)
  Sender: FDA-Public Use
  Company Number: JP-GILEAD-2019-0394187

PATIENT
  Age: 65 Year
  Sex: Female
  Weight: 42.5 kg

DRUGS (2)
  1. ENTECAVIR [ENTECAVIR MONOHYDRATE] [Concomitant]
     Indication: HEPATITIS B
     Dosage: UNK
     Route: 048
     Dates: start: 20190309
  2. VEMLIDY [Suspect]
     Active Substance: TENOFOVIR ALAFENAMIDE FUMARATE
     Indication: HEPATITIS B
     Dosage: 1 DOSAGE FORM, QD
     Route: 048
     Dates: start: 20180830

REACTIONS (4)
  - Hepatitis B surface antigen positive [Not Recovered/Not Resolved]
  - Therapeutic response decreased [Unknown]
  - Hepatic enzyme increased [Recovered/Resolved]
  - Hepatitis B e antigen positive [Not Recovered/Not Resolved]
